FAERS Safety Report 16070929 (Version 1)
Quarter: 2019Q2

REPORT INFORMATION
  Report Type: Spontaneous
  Country: US (occurrence: US)
  Receive Date: 20190314
  Receipt Date: 20190314
  Transmission Date: 20190711
  Serious: Yes (Disabling)
  Sender: FDA-Public Use
  Company Number: None

PATIENT
  Age: 61 Year
  Sex: Female
  Weight: 76.5 kg

DRUGS (3)
  1. LEVOFLOXACIN. [Suspect]
     Active Substance: LEVOFLOXACIN
     Indication: EAR INFECTION
     Dosage: ?          QUANTITY:10 CAPSULE(S);?
     Route: 048
     Dates: start: 20181221, end: 20181224
  2. LEVOFLOXACIN. [Suspect]
     Active Substance: LEVOFLOXACIN
     Indication: BRONCHITIS
     Dosage: ?          QUANTITY:10 CAPSULE(S);?
     Route: 048
     Dates: start: 20181221, end: 20181224
  3. LEVOFLOXACIN. [Suspect]
     Active Substance: LEVOFLOXACIN
     Indication: SINUSITIS
     Dosage: ?          QUANTITY:10 CAPSULE(S);?
     Route: 048
     Dates: start: 20181221, end: 20181224

REACTIONS (17)
  - Pain in extremity [None]
  - Gait inability [None]
  - Nausea [None]
  - Rash papular [None]
  - Blood pressure inadequately controlled [None]
  - Generalised oedema [None]
  - Muscle atrophy [None]
  - Headache [None]
  - Heart rate increased [None]
  - Vein rupture [None]
  - Temperature regulation disorder [None]
  - Peripheral swelling [None]
  - Tendon disorder [None]
  - Memory impairment [None]
  - Musculoskeletal pain [None]
  - Pharyngeal swelling [None]
  - Mouth swelling [None]

NARRATIVE: CASE EVENT DATE: 20181224
